FAERS Safety Report 22604891 (Version 3)
Quarter: 2024Q1

REPORT INFORMATION
  Report Type: Report from Study
  Country: MX (occurrence: MX)
  Receive Date: 20230615
  Receipt Date: 20240201
  Transmission Date: 20240410
  Serious: Yes (Hospitalization, Other)
  Sender: FDA-Public Use
  Company Number: MX-002147023-NVSC2023MX135674

PATIENT
  Sex: Female

DRUGS (2)
  1. TASIGNA [Suspect]
     Active Substance: NILOTINIB
     Indication: Chronic myeloid leukaemia
     Dosage: UNK (2 CAPSULES IN THE MORNING AND 1 IN THE AFTERNOON)
     Route: 048
  2. TASIGNA [Suspect]
     Active Substance: NILOTINIB
     Dosage: UNK
     Route: 048

REACTIONS (17)
  - Pulmonary oedema [Unknown]
  - Oxygen saturation abnormal [Unknown]
  - Embolism [Unknown]
  - Seizure [Unknown]
  - Diabetes mellitus [Unknown]
  - Angina pectoris [Unknown]
  - Depressed mood [Unknown]
  - Stress [Unknown]
  - Gait inability [Unknown]
  - Discouragement [Unknown]
  - Tongue disorder [Unknown]
  - Aphonia [Unknown]
  - Hypoaesthesia [Unknown]
  - Pain in extremity [Unknown]
  - Tremor [Unknown]
  - Malaise [Unknown]
  - Anxiety [Unknown]
